FAERS Safety Report 8919346 (Version 1)
Quarter: 2012Q4

REPORT INFORMATION
  Report Type: 
  Country: US (occurrence: US)
  Receive Date: 20121121
  Receipt Date: 20121121
  Transmission Date: 20130627
  Serious: No
  Sender: FDA-Public Use
  Company Number: US-GLAXOSMITHKLINE-A0995624A

PATIENT
  Age: 79 Year
  Sex: Male

DRUGS (2)
  1. ARZERRA [Suspect]
     Indication: CHRONIC LYMPHOCYTIC LEUKAEMIA
     Dosage: 2000MG Weekly
     Route: 042
     Dates: start: 20120831
  2. NO CONCURRENT MEDICATION [Concomitant]

REACTIONS (1)
  - Decreased appetite [Not Recovered/Not Resolved]
